FAERS Safety Report 4418282-9 (Version None)
Quarter: 2004Q3

REPORT INFORMATION
  Report Type: 
  Country: None (occurrence: None)
  Receive Date: 20040809
  Receipt Date: 20040121
  Transmission Date: 20050211
  Serious: No
  Sender: FDA-Public Use
  Company Number: US-GLAXOSMITHKLINE-A0495558A

PATIENT
  Age: 53 Year
  Sex: Female

DRUGS (3)
  1. PAXIL CR [Suspect]
     Indication: DEPRESSION
     Dosage: 31.25MG PER DAY
     Route: 048
     Dates: start: 19970101, end: 20031215
  2. LEXAPRO [Concomitant]
  3. VITAMIN B6 [Concomitant]

REACTIONS (3)
  - AGITATION [None]
  - ANXIETY [None]
  - DIZZINESS [None]
